FAERS Safety Report 4395875-9 (Version None)
Quarter: 2004Q3

REPORT INFORMATION
  Report Type: 
  Country: None (occurrence: None)
  Receive Date: 20040713
  Receipt Date: 20040602
  Transmission Date: 20050211
  Serious: Yes (Hospitalization)
  Sender: FDA-Public Use
  Company Number: PHFR2004GB02337

PATIENT
  Age: 85 Year
  Sex: Female

DRUGS (7)
  1. DICLOFENAC SODIUM [Suspect]
     Indication: ARTHRALGIA
     Dosage: 75 MG, BID
     Route: 048
     Dates: end: 20040517
  2. ASPIRIN [Suspect]
     Indication: TRANSIENT ISCHAEMIC ATTACK
     Dosage: 75MG OM
     Route: 048
     Dates: end: 20040517
  3. DEXAMETHASONE [Concomitant]
     Route: 048
     Dates: start: 20040510
  4. ALLOPURINOL [Concomitant]
     Dosage: 100 MG, QD
     Route: 048
  5. LATANOPROST [Concomitant]
     Route: 047
  6. ALENDRONATE SODIUM [Concomitant]
     Dosage: 70 MG, QW
     Route: 048
  7. COSOPT [Concomitant]
     Dosage: UNK, UNK
     Route: 047

REACTIONS (4)
  - GASTRIC ULCER [None]
  - HAEMOGLOBIN DECREASED [None]
  - IRON DEFICIENCY ANAEMIA [None]
  - SUBDURAL HAEMATOMA [None]
